FAERS Safety Report 4364918-0 (Version None)
Quarter: 2004Q2

REPORT INFORMATION
  Report Type: 
  Country: None (occurrence: None)
  Receive Date: 20040521
  Receipt Date: 20040428
  Transmission Date: 20050107
  Serious: Yes (Other)
  Sender: FDA-Public Use
  Company Number: JP_040503087

PATIENT
  Age: 12 Year
  Sex: Female

DRUGS (9)
  1. VINCRISTINE SULFATE [Suspect]
     Indication: NON-HODGKIN'S LYMPHOMA
  2. PREDNISOLONE [Concomitant]
  3. DEXAMETHASONE [Concomitant]
  4. CYCLOPHOSPHAMIDE [Concomitant]
  5. ADRIAMYCIN PFS [Concomitant]
  6. L-ASPARGINASE [Concomitant]
  7. METHOTREXATE [Concomitant]
  8. CYTARABINE [Concomitant]
  9. HYDROCORTISONE [Concomitant]

REACTIONS (22)
  - ACTIVATED PARTIAL THROMBOPLASTIN TIME PROLONGED [None]
  - ANGIONEUROTIC OEDEMA [None]
  - BLOOD ALBUMIN DECREASED [None]
  - BLOOD CALCIUM DECREASED [None]
  - BLOOD CHLORIDE DECREASED [None]
  - BLOOD FIBRINOGEN DECREASED [None]
  - BLOOD GLUCOSE INCREASED [None]
  - BLOOD LACTATE DEHYDROGENASE INCREASED [None]
  - BLOOD SODIUM DECREASED [None]
  - C-REACTIVE PROTEIN INCREASED [None]
  - CLONIC CONVULSION [None]
  - CSF PROTEIN INCREASED [None]
  - DRUG INTERACTION [None]
  - ENDOTHELIAL DYSFUNCTION [None]
  - HAEMOGLOBIN DECREASED [None]
  - HEADACHE [None]
  - HEART RATE INCREASED [None]
  - HYPERTENSION [None]
  - JOINT DISLOCATION [None]
  - LEUKOENCEPHALOPATHY [None]
  - PROTEIN S DECREASED [None]
  - WHITE BLOOD CELL COUNT DECREASED [None]
